FAERS Safety Report 6785945-X (Version None)
Quarter: 2010Q2

REPORT INFORMATION
  Report Type: 
  Country: None (occurrence: None)
  Receive Date: 20100623
  Receipt Date: 20100621
  Transmission Date: 20101027
  Serious: Yes (Other)
  Sender: FDA-Public Use
  Company Number: US-BRISTOL-MYERS SQUIBB COMPANY-15158637

PATIENT
  Age: 80 Year
  Sex: Female
  Weight: 69 kg

DRUGS (3)
  1. ERBITUX [Suspect]
     Indication: HEAD AND NECK CANCER
  2. COUMADIN [Suspect]
     Indication: COAGULOPATHY
  3. RADIATION THERAPY [Suspect]
     Indication: HEAD AND NECK CANCER

REACTIONS (2)
  - OROPHARYNGEAL BLISTERING [None]
  - PHARYNGEAL ULCERATION [None]
